FAERS Safety Report 10494691 (Version 1)
Quarter: 2014Q4

REPORT INFORMATION
  Report Type: Spontaneous
  Country: US (occurrence: None)
  Receive Date: 20141001
  Receipt Date: 20141001
  Transmission Date: 20150528
  Serious: Yes (Other)
  Sender: FDA-Public Use
  Company Number: CIO14064283

PATIENT
  Sex: Female

DRUGS (2)
  1. CREST 3D WHITE LUXE [Suspect]
     Active Substance: POTASSIUM NITRATE\SODIUM FLUORIDE
     Dosage: INTRAORAL
  2. CREST PRO-HEALTH ALL-AROUND PROTECTION [Suspect]
     Active Substance: STANNOUS FLUORIDE
     Dosage: 1 APPLIC-A THIN RIBBON O BRUSH, 2/DAY, INTRAORAL
     Dates: start: 20090101, end: 20140915

REACTIONS (6)
  - Noninfective gingivitis [None]
  - Stomatitis [None]
  - Gingivitis [None]
  - Bone loss [None]
  - Gingival cyst [None]
  - Tooth disorder [None]
